FAERS Safety Report 10166701 (Version 1)
Quarter: 2014Q2

REPORT INFORMATION
  Report Type: Spontaneous
  Country: US (occurrence: None)
  Receive Date: 20140509
  Receipt Date: 20140509
  Transmission Date: 20141212
  Serious: No
  Sender: FDA-Public Use
  Company Number: None

PATIENT
  Age: 39 Year
  Sex: Female

DRUGS (2)
  1. SOVALDI [Suspect]
     Indication: CHRONIC HEPATITIS C
     Dosage: 400 MG, QD, ORAL
     Route: 048
  2. RIBAVIRIN [Concomitant]

REACTIONS (6)
  - Injection site rash [None]
  - Alopecia [None]
  - Tooth disorder [None]
  - Fatigue [None]
  - Pruritus [None]
  - Platelet count decreased [None]
